FAERS Safety Report 22836777 (Version 5)
Quarter: 2023Q4

REPORT INFORMATION
  Report Type: Report from Study
  Country: SE (occurrence: SE)
  Receive Date: 20230818
  Receipt Date: 20231218
  Transmission Date: 20240110
  Serious: Yes (Hospitalization)
  Sender: FDA-Public Use
  Company Number: SE-JNJFOC-20230827419

PATIENT
  Age: 53 Year
  Sex: Male

DRUGS (10)
  1. ESKETAMINE [Suspect]
     Active Substance: ESKETAMINE
     Indication: Depression
     Dosage: 56 MG, 3 DOSES
     Dates: start: 20230710, end: 20230717
  2. ESKETAMINE [Suspect]
     Active Substance: ESKETAMINE
     Dosage: 84 MG, 1 DOSE
     Dates: start: 20230719, end: 20230719
  3. ESKETAMINE [Suspect]
     Active Substance: ESKETAMINE
     Dosage: 56 MG, 3 DOSES
     Dates: start: 20230801, end: 20230816
  4. OLANZAPINE [Concomitant]
     Active Substance: OLANZAPINE
     Route: 065
     Dates: start: 202301
  5. ALPRAZOLAM [Concomitant]
     Active Substance: ALPRAZOLAM
     Route: 065
     Dates: start: 20230320
  6. LEVOMEPROMAZINE [Concomitant]
     Active Substance: LEVOMEPROMAZINE
     Route: 065
     Dates: start: 20231004
  7. IMOVANE [Concomitant]
     Active Substance: ZOPICLONE
     Route: 065
     Dates: start: 20231004
  8. VALPROATE [Concomitant]
     Active Substance: VALPROIC ACID
     Dosage: 500 UNSPECIFIED UNITS DOSE
     Route: 048
     Dates: start: 20221213
  9. FLUOXETINE [Concomitant]
     Active Substance: FLUOXETINE HYDROCHLORIDE
     Dosage: 15 UNSPECIFIED UNIT DOSE
     Route: 048
     Dates: start: 202301
  10. LITHIUM [Concomitant]
     Active Substance: LITHIUM
     Dosage: 168 UNSPECIFIED UNIT DOSE
     Route: 048
     Dates: start: 2015

REACTIONS (2)
  - Anxiety [Unknown]
  - Depressed mood [Recovered/Resolved]

NARRATIVE: CASE EVENT DATE: 20230804
